FAERS Safety Report 8564592-3 (Version None)
Quarter: 2012Q3

REPORT INFORMATION
  Report Type: 
  Country: None (occurrence: None)
  Receive Date: 20120803
  Receipt Date: 20120726
  Transmission Date: 20120928
  Serious: Yes (Hospitalization)
  Sender: FDA-Public Use
  Company Number: JP-EISAI INC-E7389-02117-CLI-JP

PATIENT
  Sex: Female
  Weight: 42 kg

DRUGS (20)
  1. HALAVEN [Suspect]
     Indication: METASTASES TO LYMPH NODES
     Route: 041
     Dates: start: 20120116, end: 20120518
  2. HOKUNALIN [Concomitant]
     Route: 048
  3. HALAVEN [Suspect]
     Indication: METASTASES TO BREAST
     Route: 041
     Dates: start: 20111021, end: 20111021
  4. MARZULENE-S [Concomitant]
     Indication: PROPHYLAXIS
     Route: 048
  5. ASPARA POTASSIUM [Concomitant]
     Indication: PROPHYLAXIS
     Route: 048
  6. OXYCONTIN [Concomitant]
     Route: 048
  7. GRANISETRON [Concomitant]
     Indication: PROPHYLAXIS
     Route: 041
  8. MAGMITT [Concomitant]
     Indication: PROPHYLAXIS
     Route: 048
  9. LASIX [Concomitant]
     Indication: PLEURAL EFFUSION
     Route: 048
  10. ZOLPIDEM [Concomitant]
     Indication: PROPHYLAXIS
     Route: 048
  11. KETOPROFEN [Concomitant]
     Route: 065
  12. ETODOLAC [Concomitant]
     Route: 048
  13. GASMOTIN [Concomitant]
     Route: 048
  14. DEXAMETHASONE [Concomitant]
     Indication: PROPHYLAXIS
     Route: 041
  15. HALAVEN [Suspect]
     Indication: BREAST CANCER RECURRENT
     Route: 041
     Dates: start: 20111104, end: 20111221
  16. HALAVEN [Suspect]
     Indication: METASTASES TO BONE
  17. LEVOFLOXACIN [Concomitant]
     Indication: PROPHYLAXIS
     Route: 048
  18. HALAVEN [Suspect]
     Indication: METASTASES TO CHEST WALL
  19. LANSOPRAZOLE [Concomitant]
     Route: 048
  20. PREDONINE [Concomitant]
     Route: 048

REACTIONS (5)
  - NEUTROPENIA [None]
  - LYMPHANGIOSIS CARCINOMATOSA [None]
  - LEUKOPENIA [None]
  - WHEEZING [None]
  - FEBRILE NEUTROPENIA [None]
